FAERS Safety Report 19010285 (Version 1)
Quarter: 2021Q1

REPORT INFORMATION
  Report Type: Report from Study
  Country: IT (occurrence: IT)
  Receive Date: 20210316
  Receipt Date: 20210316
  Transmission Date: 20210420
  Serious: Yes (Hospitalization, Other)
  Sender: FDA-Public Use
  Company Number: IT-BRISTOL-MYERS SQUIBB COMPANY-BMS-2021-024465

PATIENT
  Age: 77 Year
  Sex: Female

DRUGS (1)
  1. APIXABAN [Suspect]
     Active Substance: APIXABAN
     Indication: CEREBROVASCULAR ACCIDENT PROPHYLAXIS
     Dosage: 2 DOSAGE FORM, DAILY
     Route: 065
     Dates: start: 20140506, end: 20210206

REACTIONS (3)
  - Ulcer haemorrhage [Recovering/Resolving]
  - Melaena [Recovering/Resolving]
  - Ileal ulcer [Recovering/Resolving]

NARRATIVE: CASE EVENT DATE: 20210202
